FAERS Safety Report 17962494 (Version 1)
Quarter: 2020Q2

REPORT INFORMATION
  Report Type: Spontaneous
  Country: US (occurrence: US)
  Receive Date: 20200630
  Receipt Date: 20200630
  Transmission Date: 20200714
  Serious: Yes (Other)
  Sender: FDA-Public Use
  Company Number: US-SA-2020SA165320

PATIENT

DRUGS (1)
  1. TOUJEO [Suspect]
     Active Substance: INSULIN GLARGINE
     Dosage: 75 IU, QD
     Route: 065

REACTIONS (4)
  - Blood glucose decreased [Unknown]
  - Extra dose administered [Unknown]
  - Dysarthria [Unknown]
  - Loss of consciousness [Unknown]
